FAERS Safety Report 4384343-6 (Version None)
Quarter: 2004Q2

REPORT INFORMATION
  Report Type: 
  Country: None (occurrence: None)
  Receive Date: 20040607
  Receipt Date: 20040224
  Transmission Date: 20050107
  Serious: No
  Sender: FDA-Public Use
  Company Number: 360024

PATIENT
  Age: 21 Year
  Sex: Male

DRUGS (1)
  1. ACCUTANE [Suspect]
     Indication: DRUG USE FOR UNKNOWN INDICATION
     Dosage: 40 MG 2 PER DAY ORAL
     Route: 048
     Dates: start: 20040203

REACTIONS (6)
  - ABDOMINAL PAIN [None]
  - COLITIS [None]
  - DIARRHOEA HAEMORRHAGIC [None]
  - MUSCLE CRAMP [None]
  - PAINFUL DEFAECATION [None]
  - RECTAL HAEMORRHAGE [None]
